FAERS Safety Report 16976964 (Version 2)
Quarter: 2020Q3

REPORT INFORMATION
  Report Type: Spontaneous
  Country: US (occurrence: US)
  Receive Date: 20191030
  Receipt Date: 20200807
  Transmission Date: 20201102
  Serious: Yes (Hospitalization, Other)
  Sender: FDA-Public Use
  Company Number: US-ASTRAZENECA-2019SF51441

PATIENT
  Age: 14424 Day
  Sex: Male

DRUGS (42)
  1. FARXIGA [Suspect]
     Active Substance: DAPAGLIFLOZIN PROPANEDIOL
     Indication: WEIGHT DECREASED
     Route: 048
     Dates: start: 20180704, end: 20181006
  2. ASPIRIN. [Concomitant]
     Active Substance: ASPIRIN
  3. NEURONTIN [Concomitant]
     Active Substance: GABAPENTIN
  4. PROAIR HFA [Concomitant]
     Active Substance: ALBUTEROL SULFATE
  5. TAMSULOSIN [Concomitant]
     Active Substance: TAMSULOSIN
  6. ROCURONIUM [Concomitant]
     Active Substance: ROCURONIUM BROMIDE
  7. NITROUS OXIDE. [Concomitant]
     Active Substance: NITROUS OXIDE
  8. LANTUS [Concomitant]
     Active Substance: INSULIN GLARGINE
  9. CLINDAMYCIN. [Concomitant]
     Active Substance: CLINDAMYCIN
  10. MAGNESIUM HYDROXIDE. [Concomitant]
     Active Substance: MAGNESIUM HYDROXIDE
  11. INSULIN DETEMIR [Concomitant]
     Active Substance: INSULIN DETEMIR
  12. INSULIN ASPART [Concomitant]
     Active Substance: INSULIN ASPART
  13. ACETAMINOPHEN. [Concomitant]
     Active Substance: ACETAMINOPHEN
  14. LOSARTAN. [Concomitant]
     Active Substance: LOSARTAN
  15. SERTRALINE [Concomitant]
     Active Substance: SERTRALINE HYDROCHLORIDE
  16. DOCUSATE SODIUM. [Concomitant]
     Active Substance: DOCUSATE SODIUM
  17. FARXIGA [Suspect]
     Active Substance: DAPAGLIFLOZIN PROPANEDIOL
     Indication: TYPE 2 DIABETES MELLITUS
     Route: 048
     Dates: start: 20180704, end: 20181006
  18. HUMALOG [Concomitant]
     Active Substance: INSULIN LISPRO
  19. MORPHINE [Concomitant]
     Active Substance: MORPHINE
  20. VANCOMYCIN [Concomitant]
     Active Substance: VANCOMYCIN
  21. PROPOFOL. [Concomitant]
     Active Substance: PROPOFOL
  22. SUCCINYLCHOLINE [Concomitant]
     Active Substance: SUCCINYLCHOLINE
  23. BYDUREON [Concomitant]
     Active Substance: EXENATIDE
  24. FLOMAX [Concomitant]
     Active Substance: TAMSULOSIN HYDROCHLORIDE
  25. SODIUM CHLORIDE. [Concomitant]
     Active Substance: SODIUM CHLORIDE
  26. KETOROLAC [Concomitant]
     Active Substance: KETOROLAC TROMETHAMINE
  27. BISACODYL. [Concomitant]
     Active Substance: BISACODYL
  28. GLUCAGON. [Concomitant]
     Active Substance: GLUCAGON
  29. LIDOCAINE. [Concomitant]
     Active Substance: LIDOCAINE
  30. FENTANYL. [Concomitant]
     Active Substance: FENTANYL
  31. FARXIGA [Suspect]
     Active Substance: DAPAGLIFLOZIN PROPANEDIOL
     Indication: BLOOD PRESSURE DECREASED
     Route: 048
     Dates: start: 20180704, end: 20181006
  32. OMEPRAZOLE. [Concomitant]
     Active Substance: OMEPRAZOLE
  33. ERTAPENEM. [Concomitant]
     Active Substance: ERTAPENEM SODIUM
  34. LINEZOLID. [Concomitant]
     Active Substance: LINEZOLID
  35. METOCLOPRAMIDE. [Concomitant]
     Active Substance: METOCLOPRAMIDE
  36. POLYETHYLENE GLYCOL [Concomitant]
     Active Substance: POLYETHYLENE GLYCOLS
  37. PERCOCET [Concomitant]
     Active Substance: ACETAMINOPHEN\OXYCODONE HYDROCHLORIDE
  38. NICOTINE. [Concomitant]
     Active Substance: NICOTINE
  39. CEFEPIME [Concomitant]
     Active Substance: CEFEPIME HYDROCHLORIDE
  40. ONDANSETRON [Concomitant]
     Active Substance: ONDANSETRON
  41. DEXTROSE. [Concomitant]
     Active Substance: DEXTROSE
  42. LANSOPRAZOLE. [Concomitant]
     Active Substance: LANSOPRAZOLE

REACTIONS (6)
  - Fournier^s gangrene [Unknown]
  - Scrotal abscess [Unknown]
  - Urinary tract infection [Unknown]
  - Testicular swelling [Unknown]
  - Cellulitis of male external genital organ [Unknown]
  - Sepsis [Unknown]

NARRATIVE: CASE EVENT DATE: 20151227
